FAERS Safety Report 7145362-X (Version None)
Quarter: 2010Q4

REPORT INFORMATION
  Report Type: 
  Country: None (occurrence: None)
  Receive Date: 20101208
  Receipt Date: 20101129
  Transmission Date: 20110411
  Serious: Yes (Other)
  Sender: FDA-Public Use
  Company Number: GB-JNJFOC-20101200799

PATIENT
  Age: 80 Year
  Sex: Male
  Weight: 70.6 kg

DRUGS (12)
  1. INFLIXIMAB, RECOMBINANT [Suspect]
     Indication: RHEUMATOID ARTHRITIS
     Route: 042
  2. ADCAL-D3 [Concomitant]
  3. CO-CODAMOL [Concomitant]
  4. FOLIC ACID [Concomitant]
     Route: 048
  5. GLICLAZIDE [Concomitant]
     Route: 048
  6. HYDROXYCHLOROQUINE [Concomitant]
  7. LANSOPRAZOLE [Concomitant]
     Route: 048
  8. METFORMIN [Concomitant]
  9. METHOTREXATE [Concomitant]
     Route: 048
  10. MORPHINE SULFATE [Concomitant]
  11. RAMIPRIL [Concomitant]
  12. SULFASALAZINE [Concomitant]

REACTIONS (1)
  - OESOPHAGEAL SQUAMOUS CELL CARCINOMA [None]
